FAERS Safety Report 13517891 (Version 4)
Quarter: 2018Q1

REPORT INFORMATION
  Report Type: Report from Study
  Country: IT (occurrence: IT)
  Receive Date: 20170505
  Receipt Date: 20180322
  Transmission Date: 20180508
  Serious: Yes (Other)
  Sender: FDA-Public Use
  Company Number: IT-BRISTOL-MYERS SQUIBB COMPANY-BMS-2017-037682

PATIENT
  Age: 67 Year
  Sex: Male
  Weight: 92 kg

DRUGS (2)
  1. SOFOSBUVIR [Suspect]
     Active Substance: SOFOSBUVIR
     Indication: CHRONIC HEPATITIS C
     Dosage: 400 MG, QD
     Route: 048
     Dates: start: 20160527, end: 20160818
  2. DACLATASVIR DIHYDROCHLORIDE [Suspect]
     Active Substance: DACLATASVIR DIHYDROCHLORIDE
     Indication: CHRONIC HEPATITIS C
     Dosage: 60 MG, QD
     Route: 048
     Dates: start: 20160527, end: 20160818

REACTIONS (6)
  - Treatment failure [Recovering/Resolving]
  - Drug ineffective [Recovering/Resolving]
  - Virologic failure [Unknown]
  - Hepatocellular carcinoma [Recovering/Resolving]
  - Chronic hepatitis C [Recovering/Resolving]
  - Viral mutation identified [Recovering/Resolving]

NARRATIVE: CASE EVENT DATE: 20161216
